FAERS Safety Report 8977910 (Version 1)
Quarter: 2012Q4

REPORT INFORMATION
  Report Type: 
  Country: US (occurrence: US)
  Receive Date: 20121219
  Receipt Date: 20121219
  Transmission Date: 20130627
  Serious: Yes (Hospitalization)
  Sender: FDA-Public Use
  Company Number: US-UPSHER-SMITH LABORATORIES, INC.-12003289

PATIENT
  Age: 82 Year
  Sex: Female

DRUGS (6)
  1. KLOR-CON M [Suspect]
     Indication: BLOOD POTASSIUM DECREASED
     Dosage: 10 mEq, tid
     Route: 048
     Dates: start: 20121016, end: 20121018
  2. KLOR-CON M [Suspect]
     Dosage: 10 mEq, qd
     Route: 048
     Dates: start: 20121019, end: 20121030
  3. HYDROCHLOROTHIAZIDE [Concomitant]
     Dosage: UNK
  4. RED YEAST RICE [Concomitant]
     Dosage: UNK
  5. COLACE [Concomitant]
     Dosage: UNK
  6. ATENOLOL [Concomitant]
     Indication: HYPERTENSION
     Dosage: UNK

REACTIONS (6)
  - Gastric cancer recurrent [Not Recovered/Not Resolved]
  - Abdominal neoplasm [Not Recovered/Not Resolved]
  - Gastrointestinal obstruction [Unknown]
  - Abdominal adhesions [Recovered/Resolved]
  - Vomiting [Unknown]
  - Abdominal pain upper [Unknown]
